FAERS Safety Report 9140247 (Version 1)
Quarter: 2013Q1

REPORT INFORMATION
  Report Type: Spontaneous
  Country: US (occurrence: None)
  Receive Date: 20130206
  Receipt Date: 20130206
  Transmission Date: 20140127
  Serious: Yes (Death, Hospitalization)
  Sender: FDA-Public Use
  Company Number: IMP_06497_2013

PATIENT
  Age: 19 Year
  Sex: Female

DRUGS (2)
  1. ALPRAZOLAM [Suspect]
     Indication: PRODUCT USED FOR UNKNOWN INDICATION
     Dosage: [20-30 TABLETS, NOT THE PRESCRIBED AMOUNT] ORAL, 3 MG BID
     Dates: start: 2011, end: 2011
  2. FLUOXETINE [Suspect]
     Indication: PRODUCT USED FOR UNKNOWN INDICATION
     Route: 048
     Dates: start: 2011, end: 2011

REACTIONS (9)
  - Respiratory arrest [None]
  - Cardiac arrest [None]
  - Completed suicide [None]
  - Thinking abnormal [None]
  - Intentional overdose [None]
  - Toxicity to various agents [None]
  - Brain oedema [None]
  - Brain death [None]
  - Hypoxic-ischaemic encephalopathy [None]
